FAERS Safety Report 8218305-5 (Version None)
Quarter: 2012Q1

REPORT INFORMATION
  Report Type: 
  Country: None (occurrence: None)
  Receive Date: 20120305
  Receipt Date: 20111130
  Transmission Date: 20120608
  Serious: No
  Sender: FDA-Public Use
  Company Number: 1000025841

PATIENT
  Age: 71 Year
  Sex: Female

DRUGS (9)
  1. SPIRIVA (TIOTROPIUM BROMIDE) (TIOTROPIUM BROMIDE) [Concomitant]
  2. ZOLOFT [Concomitant]
  3. ADVAIR (SERETIDE) (SERETIDE) [Concomitant]
  4. DALIRESP [Suspect]
     Indication: CHRONIC OBSTRUCTIVE PULMONARY DISEASE
     Dosage: 500 MCG (500 MCG, 1 IN 1 D), ORAL;  250 MCG (250 MCG, 1 IN 1 D), ORAL
     Route: 048
     Dates: start: 20111113, end: 20111127
  5. DALIRESP [Suspect]
     Indication: CHRONIC OBSTRUCTIVE PULMONARY DISEASE
     Dosage: 500 MCG (500 MCG, 1 IN 1 D), ORAL;  250 MCG (250 MCG, 1 IN 1 D), ORAL
     Route: 048
     Dates: start: 20111128
  6. SIMVASTATIN [Concomitant]
  7. VITAMIN B12 (VITAMIN B12) (VITAMIN B12) [Concomitant]
  8. VITAMIN C (ASCORBIC ACID) (ASCORBIC ACID) [Concomitant]
  9. VITAMIN E (VITAMIN E) (VITAMIN E) [Concomitant]

REACTIONS (6)
  - NAUSEA [None]
  - RESTLESSNESS [None]
  - HEADACHE [None]
  - INSOMNIA [None]
  - DIZZINESS [None]
  - BACK PAIN [None]
